FAERS Safety Report 12549493 (Version 1)
Quarter: 2016Q3

REPORT INFORMATION
  Report Type: Spontaneous
  Country: US (occurrence: US)
  Receive Date: 20160712
  Receipt Date: 20160712
  Transmission Date: 20161109
  Serious: No
  Sender: FDA-Public Use
  Company Number: US-PERRIGO-15US005600

PATIENT
  Age: 64 Year
  Sex: Female
  Weight: 88.44 kg

DRUGS (1)
  1. GYNAZOLE-1 [Suspect]
     Active Substance: BUTOCONAZOLE NITRATE
     Indication: VULVOVAGINAL MYCOTIC INFECTION
     Dosage: APPROXIMATELY 100 MG, SINGLE
     Route: 067
     Dates: start: 20150529, end: 20150529

REACTIONS (2)
  - Underdose [Recovered/Resolved]
  - Vulvovaginal pain [Recovered/Resolved]

NARRATIVE: CASE EVENT DATE: 20150529
